FAERS Safety Report 8030752-3 (Version None)
Quarter: 2012Q1

REPORT INFORMATION
  Report Type: 
  Country: None (occurrence: None)
  Receive Date: 20120109
  Receipt Date: 20120105
  Transmission Date: 20120608
  Serious: Yes (Other)
  Sender: FDA-Public Use
  Company Number: PHHY2011AU40052

PATIENT
  Sex: Male

DRUGS (1)
  1. GLEEVEC [Suspect]
     Indication: CHRONIC MYELOID LEUKAEMIA
     Dosage: 400 MG, DAILY
     Route: 048
     Dates: start: 20110401

REACTIONS (8)
  - CONTUSION [None]
  - ANAEMIA [None]
  - SWELLING FACE [None]
  - EYE SWELLING [None]
  - FATIGUE [None]
  - VISION BLURRED [None]
  - PENILE OEDEMA [None]
  - NAUSEA [None]
